FAERS Safety Report 8548393-8 (Version None)
Quarter: 2012Q3

REPORT INFORMATION
  Report Type: 
  Country: None (occurrence: None)
  Receive Date: 20120730
  Receipt Date: 20120719
  Transmission Date: 20120928
  Serious: Yes (Other)
  Sender: FDA-Public Use
  Company Number: AU-JNJFOC-20120511751

PATIENT
  Sex: Female

DRUGS (8)
  1. CONCERTA [Suspect]
     Indication: ATTENTION DEFICIT/HYPERACTIVITY DISORDER
     Route: 048
  2. SERTRALINE HYDROCHLORIDE [Suspect]
     Indication: DEPRESSION
     Dosage: 50 MG MANE
     Route: 065
     Dates: start: 20090518
  3. SERTRALINE HYDROCHLORIDE [Suspect]
     Indication: ANXIETY
     Route: 065
  4. DULOXETIME HYDROCHLORIDE [Suspect]
     Indication: ANXIETY
     Route: 048
     Dates: start: 20090518, end: 20120418
  5. SERTRALINE HYDROCHLORIDE [Suspect]
     Route: 065
  6. DULOXETIME HYDROCHLORIDE [Suspect]
     Indication: DEPRESSION
     Route: 048
     Dates: start: 20090518, end: 20120418
  7. SERTRALINE HYDROCHLORIDE [Suspect]
     Dosage: 50 MG MANE
     Route: 065
     Dates: start: 20090518
  8. CONCERTA [Suspect]
     Route: 048

REACTIONS (3)
  - GESTATIONAL DIABETES [None]
  - PRE-ECLAMPSIA [None]
  - MATERNAL EXPOSURE DURING PREGNANCY [None]
